FAERS Safety Report 8113882 (Version 3)
Quarter: 2012Q4

REPORT INFORMATION
  Report Type: 
  Country: US (occurrence: US)
  Receive Date: 20110831
  Receipt Date: 20121015
  Transmission Date: 20130627
  Serious: Yes (Hospitalization)
  Sender: FDA-Public Use
  Company Number: US-BIOGENIDEC-2011BI032269

PATIENT
  Age: 55 Year
  Sex: Female

DRUGS (3)
  1. AVONEX [Suspect]
     Indication: MULTIPLE SCLEROSIS
     Route: 030
     Dates: start: 20090828
  2. HEART MEDICATION (NOS) [Concomitant]
  3. BROMOCRIPTINE [Concomitant]
     Indication: PITUITARY ENLARGEMENT

REACTIONS (12)
  - Dyspnoea [Recovered/Resolved]
  - Palpitations [Recovered/Resolved]
  - Supraventricular tachycardia [Recovered/Resolved]
  - Breast lump removal [Recovered/Resolved]
  - Fear [Not Recovered/Not Resolved]
  - Sensation of heaviness [Not Recovered/Not Resolved]
  - Stress [Recovered/Resolved]
  - Coordination abnormal [Not Recovered/Not Resolved]
  - Heart rate increased [Recovered/Resolved]
  - Depressed mood [Recovered/Resolved]
  - Pain in extremity [Not Recovered/Not Resolved]
  - Headache [Recovered/Resolved]
